FAERS Safety Report 9081148 (Version 1)
Quarter: 2013Q1

REPORT INFORMATION
  Report Type: Spontaneous
  Country: US (occurrence: US)
  Receive Date: 20130218
  Receipt Date: 20130218
  Transmission Date: 20140127
  Serious: No
  Sender: FDA-Public Use
  Company Number: US-PFIZER INC-2013061688

PATIENT
  Sex: Female

DRUGS (5)
  1. GEODON [Suspect]
     Dosage: UNK
  2. NORVASC [Suspect]
     Dosage: UNK
  3. EFFEXOR XR [Suspect]
     Dosage: UNK
  4. LOPID [Suspect]
     Dosage: UNK
  5. NEURONTIN [Suspect]
     Dosage: UNK

REACTIONS (1)
  - Aphonia [Unknown]
